FAERS Safety Report 16854507 (Version 1)
Quarter: 2019Q3

REPORT INFORMATION
  Report Type: Spontaneous
  Country: AU (occurrence: AU)
  Receive Date: 20190926
  Receipt Date: 20190926
  Transmission Date: 20191005
  Serious: Yes (Other)
  Sender: FDA-Public Use
  Company Number: AU-009507513-1909AUS008362

PATIENT
  Age: 60 Year
  Sex: Female

DRUGS (1)
  1. PEMBROLIZUMAB. [Suspect]
     Active Substance: PEMBROLIZUMAB
     Indication: LUNG ADENOCARCINOMA
     Dosage: 200 MG, CYCLICAL

REACTIONS (3)
  - Pericardial effusion [Recovered/Resolved]
  - Pericarditis [Recovered/Resolved]
  - Immune-mediated adverse reaction [Recovered/Resolved]
